FAERS Safety Report 5030298-0 (Version None)
Quarter: 2006Q2

REPORT INFORMATION
  Report Type: 
  Country: None (occurrence: None)
  Receive Date: 20060615
  Receipt Date: 20060526
  Transmission Date: 20061013
  Serious: Yes (Hospitalization, Other)
  Sender: FDA-Public Use
  Company Number: 2005132515

PATIENT
  Age: 39 Year
  Sex: Male

DRUGS (12)
  1. CELEBREX [Suspect]
     Indication: ILL-DEFINED DISORDER
     Dosage: 200 MG, ORAL
     Route: 048
     Dates: start: 20021001, end: 20040701
  2. MONTELUKAST [Concomitant]
  3. FLEXERIL [Concomitant]
  4. SOMA [Concomitant]
  5. PAXIL [Concomitant]
  6. LORCET-HD [Concomitant]
  7. XANAX [Concomitant]
  8. ZYPREXA [Concomitant]
  9. RISPERDAL [Concomitant]
  10. TOPAMAX [Concomitant]
  11. TRAZODONE HCL [Concomitant]
  12. SEROQUEL [Concomitant]

REACTIONS (2)
  - CELLULITIS [None]
  - DEEP VEIN THROMBOSIS [None]
